FAERS Safety Report 6855301-4 (Version None)
Quarter: 2010Q3

REPORT INFORMATION
  Report Type: 
  Country: None (occurrence: None)
  Receive Date: 20100719
  Receipt Date: 20100708
  Transmission Date: 20110219
  Serious: Yes (Hospitalization)
  Sender: FDA-Public Use
  Company Number: US-BIOGENIDEC-2010BI023288

PATIENT
  Age: 41 Year
  Sex: Female

DRUGS (1)
  1. TYSABRI [Suspect]
     Indication: MULTIPLE SCLEROSIS
     Route: 042
     Dates: start: 20090513

REACTIONS (8)
  - BACTERIAL INFECTION [None]
  - CHEST PAIN [None]
  - CHILLS [None]
  - DIZZINESS [None]
  - FEELING COLD [None]
  - GENERAL SYMPTOM [None]
  - SCAR [None]
  - WEIGHT INCREASED [None]
